FAERS Safety Report 24254560 (Version 1)
Quarter: 2024Q3

REPORT INFORMATION
  Report Type: Spontaneous
  Country: US (occurrence: US)
  Receive Date: 20240827
  Receipt Date: 20240827
  Transmission Date: 20241016
  Serious: No
  Sender: ABBVIE
  Company Number: US-ABBVIE-5895148

PATIENT
  Age: 67 Year
  Sex: Female

DRUGS (1)
  1. MEMANTINE [Suspect]
     Active Substance: MEMANTINE
     Indication: Amnesia
     Route: 065

REACTIONS (1)
  - Drug ineffective [Unknown]
